FAERS Safety Report 21943532 (Version 3)
Quarter: 2023Q1

REPORT INFORMATION
  Report Type: Report from Study
  Country: US (occurrence: US)
  Receive Date: 20230202
  Receipt Date: 20230324
  Transmission Date: 20230417
  Serious: Yes (Hospitalization, Other)
  Sender: FDA-Public Use
  Company Number: US-ABBVIE-4291252

PATIENT
  Sex: Female

DRUGS (1)
  1. RINVOQ [Suspect]
     Active Substance: UPADACITINIB
     Indication: Rheumatoid arthritis
     Dosage: FORM STRENGTH: 15 MILLIGRAM
     Route: 058
     Dates: start: 202209

REACTIONS (5)
  - Fall [Unknown]
  - Atrial fibrillation [Unknown]
  - Ankle fracture [Unknown]
  - Medical procedure [Unknown]
  - Dizziness [Unknown]
